FAERS Safety Report 4848013-X (Version None)
Quarter: 2005Q4

REPORT INFORMATION
  Report Type: 
  Country: None (occurrence: None)
  Receive Date: 20051206
  Receipt Date: 20051123
  Transmission Date: 20060501
  Serious: Yes (Life-Threatening)
  Sender: FDA-Public Use
  Company Number: FR_040704459

PATIENT
  Age: 17 Year
  Sex: Female
  Weight: 43 kg

DRUGS (3)
  1. PROZAC [Suspect]
     Dosage: ORAL
     Route: 048
     Dates: end: 20040426
  2. TERCIAN (CYAMEMAZINE) [Concomitant]
  3. NOCTRAN 10 (ACEPROMAZINE, ACEPROMETAZINE, CLORAZEPATE DIPOTASSIUM) [Concomitant]

REACTIONS (2)
  - AGRANULOCYTOSIS [None]
  - EAR INFECTION [None]
